FAERS Safety Report 4526124-6 (Version None)
Quarter: 2004Q4

REPORT INFORMATION
  Report Type: 
  Country: None (occurrence: None)
  Receive Date: 20041213
  Receipt Date: 20041213
  Transmission Date: 20050328
  Serious: Yes (Death)
  Sender: FDA-Public Use
  Company Number: None

PATIENT
  Age: 58 Year
  Sex: Male
  Weight: 95.46 kg

DRUGS (37)
  1. BUSULFAN [Suspect]
     Dosage: 58MG  Q 6HRS   INTRAVENOUS
     Route: 042
     Dates: start: 20041115, end: 20041119
  2. MESNA [Suspect]
     Dosage: 1812 MG   Q 6HRS   INTRAVENOUS
     Route: 042
     Dates: start: 20041120, end: 20041123
  3. ACETAMINOPHEN [Concomitant]
  4. ACETYLCYSTEINE [Concomitant]
  5. ACYCLOVIR [Concomitant]
  6. ALTEPLASE [Concomitant]
  7. CALCIUM GLUCONATE [Concomitant]
  8. CASPOFUNGIN [Concomitant]
  9. CEFEPIME [Concomitant]
  10. CIPROFLOXACIN [Concomitant]
  11. DIPHENHYDRAMINE [Concomitant]
  12. EPINEPHRINE [Concomitant]
  13. FAMOTIDINE [Concomitant]
  14. FLUCONAZOLE [Concomitant]
  15. GLUCOSE [Concomitant]
  16. HEPARIN [Concomitant]
  17. HYDROCORTISONE [Concomitant]
  18. HYDROMORPHONE [Concomitant]
  19. INSULIN ISOPHANE [Concomitant]
  20. REGULAR INSULIN [Concomitant]
  21. LANSOPRAZOLE [Concomitant]
  22. LIDOCAINE [Concomitant]
  23. MAGNESIUM SULFATE [Concomitant]
  24. METOPROLOL TARTRATE [Concomitant]
  25. MISCELLANEOUS MEDICATION [Concomitant]
  26. MORPHINE [Concomitant]
  27. ONDANSETRON [Concomitant]
  28. PHYTONADIONE [Concomitant]
  29. PIPERACILLIN-TAZOBACTAM [Concomitant]
  30. POTASSIUM CHLORIDE [Concomitant]
  31. RESPONSE TO MEDICATION FORM [Concomitant]
  32. SALT + SODA MOUTHWASH [Concomitant]
  33. SCOPOLAMINE [Concomitant]
  34. SODIUM BICARBONATE [Concomitant]
  35. SODIUM POLYSTYRENE SULFONATE [Concomitant]
  36. URSODIOL [Concomitant]
  37. VANCOMYCIN [Concomitant]

REACTIONS (5)
  - HYPOTENSION [None]
  - RENAL FAILURE ACUTE [None]
  - TACHYCARDIA [None]
  - TRANSPLANT [None]
  - VENTRICULAR TACHYCARDIA [None]
